FAERS Safety Report 4428507-1 (Version None)
Quarter: 2004Q3

REPORT INFORMATION
  Report Type: 
  Country: None (occurrence: None)
  Receive Date: 20040816
  Receipt Date: 20040804
  Transmission Date: 20050211
  Serious: Yes (Hospitalization)
  Sender: FDA-Public Use
  Company Number: US012103

PATIENT
  Age: 56 Year
  Sex: Male

DRUGS (21)
  1. ACTIQ [Suspect]
     Indication: HEADACHE
     Dosage: 200 UG Q24H BUCCAL
     Route: 002
  2. ACTIQ [Suspect]
     Indication: NEUROPATHY
     Dosage: 200 UG Q24H BUCCAL
     Route: 002
  3. FENOFIBRATE [Concomitant]
  4. PROTONIX [Concomitant]
  5. AVANDIA [Concomitant]
  6. SINGULAIR [Concomitant]
  7. ZYPREXA [Concomitant]
  8. NEURONTIN [Concomitant]
  9. TRAZODONE [Concomitant]
  10. CATAPRES [Concomitant]
  11. CLONAZEPAM [Concomitant]
  12. EPIVIR [Concomitant]
  13. DEXAMETHASONE [Concomitant]
  14. REGLAN [Concomitant]
  15. ZIAGEN [Concomitant]
  16. VIRAMUNE [Concomitant]
  17. DUONEB [Concomitant]
  18. LEVOFLOXACIN [Concomitant]
  19. SEROQUEL [Concomitant]
  20. DEMEROL [Concomitant]
  21. ATIVAN [Concomitant]

REACTIONS (6)
  - CHEST X-RAY ABNORMAL [None]
  - DEEP VEIN THROMBOSIS [None]
  - FOREIGN BODY ASPIRATION [None]
  - OXYGEN SATURATION DECREASED [None]
  - PNEUMONIA [None]
  - THERAPY NON-RESPONDER [None]
